FAERS Safety Report 6686350-7 (Version None)
Quarter: 2010Q2

REPORT INFORMATION
  Report Type: 
  Country: None (occurrence: None)
  Receive Date: 20100415
  Receipt Date: 20100415
  Transmission Date: 20101027
  Serious: No
  Sender: FDA-Public Use
  Company Number: None

PATIENT
  Age: 42 Year
  Sex: Female
  Weight: 56.246 kg

DRUGS (3)
  1. ZOMETA [Suspect]
     Indication: BREAST CANCER
     Dosage: 1 MG EVERY YEAR IV
     Route: 042
     Dates: start: 20100406
  2. ZOMETA [Suspect]
     Indication: OSTEOPENIA
     Dosage: 1 MG EVERY YEAR IV
     Route: 042
     Dates: start: 20100406
  3. EFFEXOR [Concomitant]

REACTIONS (1)
  - INFLUENZA LIKE ILLNESS [None]
